FAERS Safety Report 11071085 (Version 1)
Quarter: 2015Q2

REPORT INFORMATION
  Report Type: Spontaneous
  Country: GB (occurrence: GB)
  Receive Date: 20150428
  Receipt Date: 20150428
  Transmission Date: 20150821
  Serious: Yes (Other)
  Sender: FDA-Public Use
  Company Number: GB-ACCORD-030186

PATIENT
  Age: 56 Year
  Sex: Female
  Weight: 82.09 kg

DRUGS (4)
  1. GABAPENTIN. [Concomitant]
     Active Substance: GABAPENTIN
  2. FLUOXETINE [Concomitant]
     Active Substance: FLUOXETINE\FLUOXETINE HYDROCHLORIDE
  3. TOPIRAMATE. [Suspect]
     Active Substance: TOPIRAMATE
     Indication: CLUSTER HEADACHE
     Route: 048
     Dates: start: 20150109, end: 20150405
  4. LANSOPRAZOLE. [Concomitant]
     Active Substance: LANSOPRAZOLE

REACTIONS (29)
  - Somnolence [Recovering/Resolving]
  - Visual impairment [Recovered/Resolved with Sequelae]
  - Vision blurred [Unknown]
  - Off label use [Unknown]
  - Decreased appetite [Recovering/Resolving]
  - Dyspnoea [Recovering/Resolving]
  - Asthenia [Recovered/Resolved with Sequelae]
  - Dry mouth [Not Recovered/Not Resolved]
  - Nausea [Recovering/Resolving]
  - Pyrexia [Recovered/Resolved with Sequelae]
  - Malaise [Recovered/Resolved with Sequelae]
  - Pain [Not Recovered/Not Resolved]
  - Dry eye [Recovered/Resolved with Sequelae]
  - Fall [Not Recovered/Not Resolved]
  - Paraesthesia [Recovering/Resolving]
  - Parosmia [Recovering/Resolving]
  - Muscle spasms [Not Recovered/Not Resolved]
  - Tinnitus [Recovered/Resolved with Sequelae]
  - Abdominal pain upper [Unknown]
  - Cough [Not Recovered/Not Resolved]
  - Arthralgia [Not Recovered/Not Resolved]
  - Contusion [Unknown]
  - Abdominal distension [Recovering/Resolving]
  - Flatulence [Recovering/Resolving]
  - Influenza like illness [Recovered/Resolved with Sequelae]
  - Breast swelling [Unknown]
  - Weight decreased [Recovered/Resolved]
  - Ageusia [Recovering/Resolving]
  - Musculoskeletal stiffness [Not Recovered/Not Resolved]

NARRATIVE: CASE EVENT DATE: 20150113
